FAERS Safety Report 25540180 (Version 1)
Quarter: 2025Q3

REPORT INFORMATION
  Report Type: Spontaneous
  Country: EU (occurrence: EU)
  Receive Date: 20250710
  Receipt Date: 20250710
  Transmission Date: 20251021
  Serious: Yes (Death, Hospitalization)
  Sender: FRESENIUS KABI
  Company Number: None

PATIENT
  Age: 76 Year
  Sex: Male
  Weight: 90.5 kg

DRUGS (14)
  1. OXALIPLATIN [Suspect]
     Active Substance: OXALIPLATIN
     Indication: Colon cancer
     Route: 042
     Dates: start: 202406, end: 20241118
  2. CAPECITABINE [Suspect]
     Active Substance: CAPECITABINE
     Indication: Colon cancer
     Route: 048
     Dates: start: 202406, end: 2024
  3. CAPECITABINE [Suspect]
     Active Substance: CAPECITABINE
     Route: 048
     Dates: start: 2024, end: 20241118
  4. CAPECITABINE [Suspect]
     Active Substance: CAPECITABINE
     Route: 048
     Dates: start: 20241118, end: 20241201
  5. LIORESAL 10 mg, scored tablet [Concomitant]
     Indication: Medullary compression syndrome
     Route: 048
  6. KALEORID LP 1000 mg, extended-release tablet [Concomitant]
     Indication: Hypokalaemia
     Route: 048
  7. CANDESARTAN CILEXETIL [Concomitant]
     Active Substance: CANDESARTAN CILEXETIL
     Indication: Hypertension
     Route: 048
  8. AMLOR 10 mg, capsule [Concomitant]
     Indication: Hypertension
     Route: 048
  9. JANUMET 50 mg/1000 mg, coated tablet [Concomitant]
     Indication: Diabetes mellitus
     Route: 048
  10. FUROSEMIDE [Concomitant]
     Active Substance: FUROSEMIDE
     Indication: Hypertension
     Route: 048
  11. KARDEGIC 75 mg, powder for oral solution in sachet [Concomitant]
     Indication: Cardiovascular event prophylaxis
     Route: 048
  12. ULTIBRO BREEZHALER 85 micrograms/43 micrograms, powder for inhalation [Concomitant]
     Indication: Chronic obstructive pulmonary disease
     Route: 048
  13. POLYETHYLENE GLYCOL 4000 [Concomitant]
     Active Substance: POLYETHYLENE GLYCOL 4000
     Indication: Constipation
     Route: 048
  14. INNOHEP 18 000 U.I. anti-Xa/0.9 ml, solution for injection (S.C.) in p [Concomitant]
     Indication: Deep vein thrombosis
     Route: 058
     Dates: start: 20241008

REACTIONS (1)
  - Cutaneous vasculitis [Fatal]

NARRATIVE: CASE EVENT DATE: 20241120
